FAERS Safety Report 6816107-5 (Version None)
Quarter: 2010Q3

REPORT INFORMATION
  Report Type: 
  Country: None (occurrence: None)
  Receive Date: 20100705
  Receipt Date: 20100624
  Transmission Date: 20110219
  Serious: Yes (Other)
  Sender: FDA-Public Use
  Company Number: CN-BAXTER-2010BH017038

PATIENT
  Age: 64 Year
  Sex: Female

DRUGS (4)
  1. ALBUMIN (HUMAN) [Suspect]
     Indication: ASCITES
     Route: 042
     Dates: start: 20100619, end: 20100619
  2. ALBUMIN (HUMAN) [Suspect]
     Indication: HEPATIC CIRRHOSIS
     Route: 042
     Dates: start: 20100619, end: 20100619
  3. PHOSPHATIDYL CHOLINE [Suspect]
     Indication: HEPATIC FUNCTION ABNORMAL
     Route: 042
     Dates: start: 20100617
  4. TRANSFER FACTOR [Concomitant]
     Indication: HEPATIC FUNCTION ABNORMAL
     Route: 030
     Dates: start: 20100617

REACTIONS (6)
  - DIZZINESS [None]
  - HYPERSENSITIVITY [None]
  - INCONTINENCE [None]
  - LOSS OF CONSCIOUSNESS [None]
  - NYSTAGMUS [None]
  - VOMITING [None]
